FAERS Safety Report 4723456-3 (Version None)
Quarter: 2005Q3

REPORT INFORMATION
  Report Type: 
  Country: None (occurrence: None)
  Receive Date: 20050721
  Receipt Date: 20050721
  Transmission Date: 20060218
  Serious: Yes (Hospitalization)
  Sender: FDA-Public Use
  Company Number: None

PATIENT
  Age: 80 Year
  Sex: Male

DRUGS (1)
  1. MYCOPHENOLATE MOFETIL 1000 MG [Suspect]
     Dosage: 1000 MG TWICE DAILY

REACTIONS (1)
  - APLASIA PURE RED CELL [None]
